FAERS Safety Report 4554574-0 (Version None)
Quarter: 2005Q1

REPORT INFORMATION
  Report Type: 
  Country: None (occurrence: None)
  Receive Date: 20050114
  Receipt Date: 20050103
  Transmission Date: 20050727
  Serious: Yes (Hospitalization)
  Sender: FDA-Public Use
  Company Number: 2005003078

PATIENT
  Sex: Male

DRUGS (5)
  1. POLYSPORIN OINTMENT (POLYMYXIN B SULFATE, BACITRACIN ZINC) [Suspect]
     Dosage: ENOUGH TO COVER EYE, ONCE DAILY, OPHTHALMIC
     Route: 047
     Dates: start: 19690101, end: 20050930
  2. PRAVASTATIN SODIUM [Concomitant]
  3. HYDROCHLOROTHIAZIDE [Concomitant]
  4. ACETYLSALICYLIC ACID (ACETYLSALICYLIC ACID) [Concomitant]
  5. CLOPIDOGREL BISULFATE [Concomitant]

REACTIONS (1)
  - MYOCARDIAL INFARCTION [None]
